FAERS Safety Report 18435892 (Version 2)
Quarter: 2020Q4

REPORT INFORMATION
  Report Type: Report from Study
  Country: GB (occurrence: GB)
  Receive Date: 20201028
  Receipt Date: 20201123
  Transmission Date: 20210114
  Serious: Yes (Hospitalization)
  Sender: FDA-Public Use
  Company Number: NVSC2020GB284460

PATIENT
  Sex: Male

DRUGS (3)
  1. SANDOSTATIN LAR DEPOT [Suspect]
     Active Substance: OCTREOTIDE ACETATE
  2. SANDOSTATIN LAR DEPOT [Suspect]
     Active Substance: OCTREOTIDE ACETATE
  3. SANDOSTATIN LAR DEPOT [Suspect]
     Active Substance: OCTREOTIDE ACETATE
     Indication: NEUROENDOCRINE TUMOUR
     Dosage: 30 MG, QMO (DRY POWDER)
     Route: 030
     Dates: start: 2010

REACTIONS (4)
  - Fall [Unknown]
  - Hypokinesia [Unknown]
  - Cholelithiasis [Unknown]
  - Fatigue [Unknown]

NARRATIVE: CASE EVENT DATE: 20201005
